FAERS Safety Report 9154245 (Version 1)
Quarter: 2013Q1

REPORT INFORMATION
  Report Type: Spontaneous
  Country: FR (occurrence: FR)
  Receive Date: 20130311
  Receipt Date: 20130311
  Transmission Date: 20140127
  Serious: Yes (Hospitalization, Other)
  Sender: FDA-Public Use
  Company Number: FR-PFIZER INC-2013080665

PATIENT
  Age: 85 Year
  Sex: Female

DRUGS (10)
  1. CORDARONE [Suspect]
     Indication: MYOCARDIAL INFARCTION
     Dosage: 100 MG, DAILY
     Route: 048
     Dates: start: 201003, end: 20121212
  2. OROCAL D [Concomitant]
     Dosage: UNK
  3. ZYMAD [Concomitant]
     Dosage: UNK
  4. ODRIK [Concomitant]
     Dosage: UNK
     Dates: start: 200512
  5. TAHOR [Concomitant]
     Dosage: UNK
     Dates: start: 200512
  6. PLAVIX [Concomitant]
     Dosage: UNK
     Dates: start: 200512
  7. KARDEGIC [Concomitant]
     Dosage: UNK
     Dates: start: 200512
  8. ALENDRONIC ACID [Concomitant]
     Dosage: UNK
  9. OROKEN [Concomitant]
     Indication: URINARY TRACT INFECTION
     Dosage: UNK
     Dates: start: 201211
  10. AMOXICILLIN [Concomitant]
     Indication: INFECTION
     Dosage: UNK
     Dates: start: 201212

REACTIONS (4)
  - Interstitial lung disease [Recovered/Resolved]
  - Urinary tract infection [Unknown]
  - Infection [Unknown]
  - Dehydration [Unknown]
